FAERS Safety Report 10369014 (Version 1)
Quarter: 2014Q1

REPORT INFORMATION
  Report Type: Spontaneous
  Country: US (occurrence: None)
  Receive Date: 20140306
  Receipt Date: 20140306
  Transmission Date: 20141002
  Serious: Yes (Hospitalization)
  Sender: FDA-Public Use
  Company Number: 163-21880-13023026

PATIENT
  Age: 78 Year
  Sex: Male

DRUGS (8)
  1. REVLIMID [Suspect]
     Indication: PLASMA CELL MYELOMA
     Dosage: 10 MG, 21 IN 21 D, PO
     Route: 048
     Dates: start: 20130128
  2. ALPRAOLAM (ALPRAZOLAM) [Concomitant]
  3. BENICAR (OLMESARTAN MEDOXOMIL) [Concomitant]
  4. DEXAMETHASONE (DEXAMETHASONE) [Concomitant]
  5. GLIPIZIDE (GLIPIZIDE) [Concomitant]
  6. LEVOTHYROXINE SODIUM (LEVOTHYROXINE SODIUM) [Concomitant]
  7. MECLIZINE HCL (MECLOZINE HYDROCHLORIDE) [Concomitant]
  8. VIAGRA (SILDENAFIL CITRATE) [Concomitant]

REACTIONS (2)
  - Renal failure [None]
  - Dizziness [None]
